FAERS Safety Report 8549207-2 (Version None)
Quarter: 2012Q3

REPORT INFORMATION
  Report Type: 
  Country: None (occurrence: None)
  Receive Date: 20120730
  Receipt Date: 20120725
  Transmission Date: 20120928
  Serious: Yes (Other)
  Sender: FDA-Public Use
  Company Number: US-PFIZER INC-2012106376

PATIENT
  Sex: Female
  Weight: 60.136 kg

DRUGS (22)
  1. VYTORIN [Concomitant]
     Dosage: 10-40 MG 1/2 TABLET ONCE DAILY
     Route: 048
     Dates: start: 20110725
  2. CALTRATE 600 +D PLUS [Concomitant]
     Dosage: 600-400 MG-UNIT 1 TABLET TWICE DAILY
     Route: 048
     Dates: start: 20111027
  3. FISH OIL [Concomitant]
     Dosage: 1000 MG, 1X/DAY
     Route: 048
     Dates: start: 20110524
  4. VIIBRYD [Concomitant]
     Dosage: 20 MG DAILY
     Dates: start: 20110101
  5. NITROSTAT [Concomitant]
     Dosage: 0.4 MG, (AS DIRECTED)
     Route: 060
     Dates: start: 20110613
  6. GARLIC [Concomitant]
     Dosage: 1 TABLET ONCE DAILY
     Route: 048
     Dates: start: 20110524
  7. XANAX [Concomitant]
     Dosage: 0.5 MG, 2X/DAY
     Route: 048
     Dates: start: 20110613
  8. ASPIRIN [Concomitant]
     Dosage: 81 MG, 1X/DAY
     Route: 048
     Dates: start: 20110613
  9. ROBAXIN [Concomitant]
     Dosage: 500 MG 1 TABLET TWICE DAILY AS NEEDED
     Route: 048
     Dates: start: 20120524
  10. VIIBRYD [Concomitant]
     Dosage: 10 MG 1 TABLET A DAY
     Dates: start: 20110524, end: 20110101
  11. CHANTIX [Suspect]
     Dosage: 1 MG, 2X/DAY
     Route: 048
     Dates: start: 20120524
  12. TRAMADOL HYDROCHLORIDE [Concomitant]
     Dosage: 50 MG, 2X/DAY
     Route: 048
     Dates: start: 20110613
  13. NEURONTIN [Concomitant]
     Dosage: 300 MG 1 CAPSULE AT BEDTIME
     Route: 048
     Dates: start: 20111227
  14. CELEXA [Concomitant]
     Dosage: 40 MG 1/2 TABLET ONCE DAILY
     Route: 048
  15. VICODIN [Concomitant]
     Dosage: 5-500 MG 1 TABLET TWICE DAILY AS NEEDED
     Dates: start: 20110315
  16. CYANOCOBALAMIN [Concomitant]
     Dosage: 1 TABLET ONCE DAILY
     Route: 048
     Dates: start: 20110524
  17. CHANTIX [Suspect]
     Indication: SMOKING CESSATION THERAPY
     Dosage: 0.5 MG DAILY
     Route: 048
     Dates: start: 20120401, end: 20120101
  18. RESTORIL [Concomitant]
     Dosage: 30 MG, 1X/DAY
     Route: 048
     Dates: start: 20111031
  19. MOBIC [Concomitant]
     Dosage: 15 MG 1 TABLET ONCE DAILY AS NEEDED
     Dates: start: 20110524
  20. LISINOPRIL [Concomitant]
     Dosage: 10 MG 1/2 TABLET ONCE DAILY
     Dates: start: 20110613
  21. PLAVIX [Concomitant]
     Dosage: 75 MG, 1X/DAY
     Route: 048
     Dates: start: 20110524
  22. VITAMIN B-12 [Concomitant]
     Dosage: 1000 UG, 1X/DAY
     Dates: start: 20110524

REACTIONS (11)
  - ABDOMINAL DISTENSION [None]
  - MUSCLE SPASMS [None]
  - ACCIDENTAL OVERDOSE [None]
  - IRRITABILITY [None]
  - MUSCULOSKELETAL DISCOMFORT [None]
  - MEMORY IMPAIRMENT [None]
  - ARTHRALGIA [None]
  - AMNESIA [None]
  - PAIN [None]
  - ABDOMINAL PAIN UPPER [None]
  - HYPERLIPIDAEMIA [None]
